FAERS Safety Report 13886253 (Version 1)
Quarter: 2017Q3

REPORT INFORMATION
  Report Type: Spontaneous
  Country: CN (occurrence: CN)
  Receive Date: 20170821
  Receipt Date: 20170821
  Transmission Date: 20171127
  Serious: Yes (Other)
  Sender: FDA-Public Use
  Company Number: CN-ASTRAZENECA-2017SE84068

PATIENT
  Age: 9 Month
  Sex: Female
  Weight: 6 kg

DRUGS (5)
  1. TERBUTALINE SULFATE. [Suspect]
     Active Substance: TERBUTALINE SULFATE
     Indication: STOMATITIS
     Route: 055
     Dates: start: 20170411, end: 20170412
  2. SODIUM CHLORIDE. [Concomitant]
     Active Substance: SODIUM CHLORIDE
     Indication: STOMATITIS
     Route: 055
     Dates: start: 20170411, end: 20170412
  3. BUDESONIDE. [Suspect]
     Active Substance: BUDESONIDE
     Indication: STOMATITIS
     Route: 055
     Dates: start: 20170411, end: 20170412
  4. CEFPROZIL. [Suspect]
     Active Substance: CEFPROZIL
     Indication: STOMATITIS
     Route: 048
     Dates: start: 20170411, end: 20170412
  5. HERBAL NOS [Suspect]
     Active Substance: HERBALS
     Indication: STOMATITIS
     Dosage: 0.5 POUCH, THREE TIMES A DAY
     Route: 048
     Dates: start: 20170411, end: 20170412

REACTIONS (4)
  - Flushing [Recovering/Resolving]
  - Pruritus [Recovering/Resolving]
  - Pyrexia [Recovering/Resolving]
  - Rash maculo-papular [Recovering/Resolving]

NARRATIVE: CASE EVENT DATE: 20170412
